FAERS Safety Report 6604622-9 (Version None)
Quarter: 2010Q1

REPORT INFORMATION
  Report Type: 
  Country: None (occurrence: None)
  Receive Date: 20100226
  Receipt Date: 20100219
  Transmission Date: 20100710
  Serious: Yes (Hospitalization, Other)
  Sender: FDA-Public Use
  Company Number: AU-SANOFI-AVENTIS-2010SA009900

PATIENT
  Age: 81 Year
  Sex: Female

DRUGS (9)
  1. INSULIN GLARGINE [Suspect]
     Route: 058
     Dates: start: 20080201
  2. AUTOPEN 24 [Suspect]
  3. PLAQUENIL [Concomitant]
  4. FRUSEMIDE [Concomitant]
  5. FENTANYL [Concomitant]
  6. PREDNISOLONE [Concomitant]
  7. APIDRA [Concomitant]
  8. METFORMIN HYDROCHLORIDE [Concomitant]
  9. FOSINOPRIL SODIUM [Concomitant]

REACTIONS (2)
  - LOWER RESPIRATORY TRACT INFECTION [None]
  - SPINAL FRACTURE [None]
